FAERS Safety Report 4701112-5 (Version None)
Quarter: 2005Q2

REPORT INFORMATION
  Report Type: 
  Country: None (occurrence: None)
  Receive Date: 20050624
  Receipt Date: 20050615
  Transmission Date: 20051028
  Serious: Yes (Hospitalization)
  Sender: FDA-Public Use
  Company Number: 2005-01281

PATIENT
  Age: 60 Year

DRUGS (1)
  1. VELCADE [Suspect]
     Indication: MULTIPLE MYELOMA
     Dosage: QD, INTRAVENOUS
     Route: 042
     Dates: start: 20050401, end: 20050601

REACTIONS (6)
  - ASTHENIA [None]
  - ASTHMA [None]
  - CONSTIPATION [None]
  - NEUROPATHY PERIPHERAL [None]
  - QUADRIPARESIS [None]
  - URINARY RETENTION [None]
